FAERS Safety Report 18379542 (Version 2)
Quarter: 2020Q4

REPORT INFORMATION
  Report Type: Report from Study
  Country: None (occurrence: US)
  Receive Date: 20201014
  Receipt Date: 20201113
  Transmission Date: 20210114
  Serious: Yes (Other)
  Sender: FDA-Public Use
  Company Number: US-INSMED, INC.-US-INS-20-01801

PATIENT
  Age: 61 Year
  Sex: Male

DRUGS (1)
  1. ARIKAYCE [Suspect]
     Active Substance: AMIKACIN
     Indication: PRODUCT USED FOR UNKNOWN INDICATION
     Route: 055
     Dates: start: 20200915, end: 202009

REACTIONS (11)
  - Dyspnoea [Unknown]
  - Oral candidiasis [Unknown]
  - Bronchospasm [Unknown]
  - Respiratory tract oedema [Unknown]
  - Cough [Not Recovered/Not Resolved]
  - Throat irritation [Unknown]
  - Oropharyngeal pain [Unknown]
  - Increased viscosity of upper respiratory secretion [Unknown]
  - Asthma [Unknown]
  - Pharyngeal swelling [Unknown]
  - Oral mucosal eruption [Unknown]

NARRATIVE: CASE EVENT DATE: 2020
